FAERS Safety Report 8920686 (Version 1)
Quarter: 2012Q4

REPORT INFORMATION
  Report Type: 
  Country: US (occurrence: US)
  Receive Date: 20121122
  Receipt Date: 20121122
  Transmission Date: 20130627
  Serious: Yes (Hospitalization, Other)
  Sender: FDA-Public Use
  Company Number: CHPA2012US023581

PATIENT
  Age: 82 Year
  Sex: Male

DRUGS (1)
  1. EXCEDRIN EXTRA STRENGTH [Suspect]
     Indication: CANCER PAIN
     Dosage: 2 DF, PRN
     Route: 048
     Dates: start: 1951

REACTIONS (11)
  - Skin cancer [Not Recovered/Not Resolved]
  - Cancer pain [Recovered/Resolved]
  - Intervertebral disc disorder [Not Recovered/Not Resolved]
  - Fall [Recovered/Resolved]
  - Ear neoplasm [Recovered/Resolved]
  - Hypertension [Unknown]
  - Anxiety [Unknown]
  - Vomiting [Unknown]
  - Headache [Unknown]
  - Therapeutic response unexpected [Unknown]
  - Off label use [Unknown]
